FAERS Safety Report 8375993-0 (Version None)
Quarter: 2012Q2

REPORT INFORMATION
  Report Type: 
  Country: None (occurrence: None)
  Receive Date: 20120518
  Receipt Date: 20120507
  Transmission Date: 20120825
  Serious: Yes (Hospitalization, Other)
  Sender: FDA-Public Use
  Company Number: 2012P1024417

PATIENT
  Age: 45 Year
  Sex: Male

DRUGS (2)
  1. CLINDAMYCIN [Concomitant]
  2. VANCOMYCIN [Suspect]
     Indication: STAPHYLOCOCCAL INFECTION
     Dosage: 1500 MG;Q6H;

REACTIONS (2)
  - NEPHROPATHY TOXIC [None]
  - RENAL TUBULAR NECROSIS [None]
